FAERS Safety Report 5786255-X (Version None)
Quarter: 2008Q2

REPORT INFORMATION
  Report Type: 
  Country: None (occurrence: None)
  Receive Date: 20080624
  Receipt Date: 20080613
  Transmission Date: 20081010
  Serious: Yes (Hospitalization)
  Sender: FDA-Public Use
  Company Number: US-ELI_LILLY_AND_COMPANY-US200804001895

PATIENT
  Sex: Female

DRUGS (6)
  1. CYMBALTA [Suspect]
     Indication: DEPRESSION
     Dosage: 60 MG, UNK
     Dates: start: 20070801
  2. CITALOPRAM HYDROBROMIDE [Concomitant]
  3. PLAVIX [Concomitant]
  4. ASPIRIN [Concomitant]
  5. LOPRESSOR [Concomitant]
  6. GLUCOSAMINE W/CHONDROITIN [Concomitant]

REACTIONS (4)
  - CARDIAC DISORDER [None]
  - COLON CANCER [None]
  - HEADACHE [None]
  - INSOMNIA [None]
